FAERS Safety Report 5536209-3 (Version None)
Quarter: 2007Q4

REPORT INFORMATION
  Report Type: 
  Country: None (occurrence: None)
  Receive Date: 20071120
  Receipt Date: 20070910
  Transmission Date: 20080405
  Serious: No
  Sender: FDA-Public Use
  Company Number: WAES 0709USA01325

PATIENT
  Age: 65 Year
  Sex: Male

DRUGS (4)
  1. JANUVIA [Suspect]
     Indication: TYPE 2 DIABETES MELLITUS
     Dosage: 100 MG DAILY PO
     Route: 048
     Dates: start: 20070528
  2. JANUMET [Suspect]
     Dosage: 100/50 MG PO
     Route: 048
  3. THERAPY UNSPECIFIED [Concomitant]
  4. METFORMIN HCL [Concomitant]

REACTIONS (2)
  - GASTRIC DISORDER [None]
  - MEDICATION ERROR [None]
